FAERS Safety Report 21752028 (Version 2)
Quarter: 2023Q1

REPORT INFORMATION
  Report Type: Report from Study
  Country: US (occurrence: None)
  Receive Date: 20221220
  Receipt Date: 20230111
  Transmission Date: 20230418
  Serious: Yes (Hospitalization, Other)
  Sender: FDA-Public Use
  Company Number: US-ROCHE-3241660

PATIENT
  Age: 78 Year
  Sex: Female
  Weight: 95.5 kg

DRUGS (3)
  1. BEVACIZUMAB [Suspect]
     Active Substance: BEVACIZUMAB
     Indication: Ovarian cancer
     Route: 042
     Dates: start: 20201218, end: 20220603
  2. ATEZOLIZUMAB [Suspect]
     Active Substance: ATEZOLIZUMAB
     Indication: Ovarian cancer
     Route: 041
     Dates: start: 20201218
  3. DOXORUBICIN HYDROCHLORIDE [Suspect]
     Active Substance: DOXORUBICIN HYDROCHLORIDE
     Indication: Ovarian cancer
     Route: 065
     Dates: start: 20201218, end: 20220520

REACTIONS (2)
  - Perineal pain [Unknown]
  - Skin ulcer [Unknown]

NARRATIVE: CASE EVENT DATE: 20220601
